FAERS Safety Report 21684043 (Version 1)
Quarter: 2022Q4

REPORT INFORMATION
  Report Type: Spontaneous
  Country: US (occurrence: None)
  Receive Date: 20221202
  Receipt Date: 20221202
  Transmission Date: 20230113
  Serious: No
  Sender: FDA-Public Use
  Company Number: None

PATIENT
  Sex: Male

DRUGS (1)
  1. ABIRATERONE [Suspect]
     Active Substance: ABIRATERONE
     Dosage: FREQUENCY : DAILY;?
     Route: 048

REACTIONS (8)
  - Drug ineffective [None]
  - Prostatic specific antigen increased [None]
  - Fatigue [None]
  - Weight decreased [None]
  - Bronchitis [None]
  - Sensitivity to weather change [None]
  - Dust allergy [None]
  - Condition aggravated [None]
